FAERS Safety Report 14194380 (Version 1)
Quarter: 2017Q4

REPORT INFORMATION
  Report Type: Spontaneous
  Country: US (occurrence: US)
  Receive Date: 20171115
  Receipt Date: 20171115
  Transmission Date: 20180321
  Serious: Yes (Disabling, Other)
  Sender: FDA-Public Use
  Company Number: None

PATIENT
  Age: 68 Year
  Sex: Female
  Weight: 72 kg

DRUGS (4)
  1. PROLIA [Suspect]
     Active Substance: DENOSUMAB
     Indication: OSTEOPOROSIS
     Dosage: 1 VIAL; EVERY 6 MONTHS; INTRAMUSCULAR
     Route: 030
     Dates: start: 20161003
  2. INHALERS [Concomitant]
     Active Substance: UNSPECIFIED INGREDIENT
  3. HERBAL/VITAMIN SUPPLEMENTS LIKE CALCIUM, VIT D, FISH OIL [Concomitant]
  4. ARMOUR THYROID [Concomitant]
     Active Substance: THYROID, PORCINE

REACTIONS (6)
  - Pain in jaw [None]
  - Condition aggravated [None]
  - Dental caries [None]
  - Gait disturbance [None]
  - Psoriasis [None]
  - Autoimmune disorder [None]

NARRATIVE: CASE EVENT DATE: 20170101
